FAERS Safety Report 8885838 (Version 1)
Quarter: 2012Q4

REPORT INFORMATION
  Report Type: Report from Study
  Country: IN (occurrence: IN)
  Receive Date: 20121105
  Receipt Date: 20121105
  Transmission Date: 20130627
  Serious: Yes (Hospitalization)
  Sender: FDA-Public Use
  Company Number: PHHO2010IN02520

PATIENT
  Age: 57 Year
  Sex: Female
  Weight: 43 kg

DRUGS (1)
  1. ALISKIREN [Suspect]
     Indication: CARDIAC FAILURE ACUTE
     Route: 048
     Dates: start: 20091208

REACTIONS (5)
  - Renal impairment [Recovered/Resolved with Sequelae]
  - Back pain [Recovered/Resolved with Sequelae]
  - Dyspnoea [Recovered/Resolved with Sequelae]
  - Orthopnoea [Recovered/Resolved with Sequelae]
  - Concomitant disease progression [Recovered/Resolved with Sequelae]
